FAERS Safety Report 11008022 (Version 2)
Quarter: 2015Q2

REPORT INFORMATION
  Report Type: Report from Study
  Country: FR (occurrence: FR)
  Receive Date: 20150410
  Receipt Date: 20150506
  Transmission Date: 20150821
  Serious: Yes (Hospitalization)
  Sender: FDA-Public Use
  Company Number: FR-ROCHE-1562104

PATIENT
  Age: 69 Year
  Sex: Male

DRUGS (2)
  1. RANIBIZUMAB [Suspect]
     Active Substance: RANIBIZUMAB
     Indication: DIABETIC RETINAL OEDEMA
     Dosage: IN LEFT EYE
     Route: 050
     Dates: start: 20141010
  2. RANIBIZUMAB [Suspect]
     Active Substance: RANIBIZUMAB
     Dosage: IN LEFT EYE?LAST DOSE PRIOR TO SAE 26/NOV/2014
     Route: 050
     Dates: start: 20141126

REACTIONS (5)
  - Diabetic retinopathy [Unknown]
  - Visual acuity reduced [Unknown]
  - Macular hole [Recovering/Resolving]
  - Arrhythmia [Unknown]
  - Eye pain [Unknown]

NARRATIVE: CASE EVENT DATE: 201502
